FAERS Safety Report 5148722-1 (Version None)
Quarter: 2006Q4

REPORT INFORMATION
  Report Type: 
  Country: None (occurrence: None)
  Receive Date: 20061107
  Receipt Date: 20061026
  Transmission Date: 20070319
  Serious: No
  Sender: FDA-Public Use
  Company Number: TPA2006A01917

PATIENT
  Sex: Female

DRUGS (1)
  1. ACTOS [Suspect]
     Dosage: 15 MG PER ORAL
     Route: 048

REACTIONS (3)
  - BLOOD CREATININE INCREASED [None]
  - KNEE ARTHROPLASTY [None]
  - OEDEMA PERIPHERAL [None]
